FAERS Safety Report 20964605 (Version 3)
Quarter: 2023Q4

REPORT INFORMATION
  Report Type: Spontaneous
  Country: JP (occurrence: JP)
  Receive Date: 20220615
  Receipt Date: 20231012
  Transmission Date: 20240110
  Serious: Yes (Death, Hospitalization, Other)
  Sender: FDA-Public Use
  Company Number: JP-JAZZ-2022-JP-019855

PATIENT
  Age: 32 Year
  Sex: Female
  Weight: 57 kg

DRUGS (1)
  1. DEFITELIO [Suspect]
     Active Substance: DEFIBROTIDE SODIUM
     Indication: Venoocclusive liver disease
     Dosage: 25 MILLIGRAM/KILOGRAM, QD
     Route: 042
     Dates: start: 20220517, end: 20220528

REACTIONS (3)
  - Myocarditis [Fatal]
  - Lymphoma [Fatal]
  - Activated partial thromboplastin time prolonged [Recovering/Resolving]

NARRATIVE: CASE EVENT DATE: 20220501
